FAERS Safety Report 16204253 (Version 2)
Quarter: 2019Q2

REPORT INFORMATION
  Report Type: Spontaneous
  Country: US (occurrence: US)
  Receive Date: 20190416
  Receipt Date: 20190424
  Transmission Date: 20190711
  Serious: Yes (Hospitalization)
  Sender: FDA-Public Use
  Company Number: US-ARRAY-2019-05405

PATIENT

DRUGS (2)
  1. MEKTOVI [Suspect]
     Active Substance: BINIMETINIB
     Indication: RENAL CANCER
     Dosage: 45 MG, BID
     Route: 048
     Dates: start: 20190204, end: 2019
  2. BRAFTOVI [Suspect]
     Active Substance: ENCORAFENIB
     Indication: RENAL CANCER
     Dosage: 450 MG, QD
     Route: 048
     Dates: start: 20190204, end: 2019

REACTIONS (2)
  - Haemorrhage intracranial [Recovering/Resolving]
  - Product use in unapproved indication [Not Recovered/Not Resolved]

NARRATIVE: CASE EVENT DATE: 20190204
